FAERS Safety Report 7584576-1 (Version None)
Quarter: 2011Q2

REPORT INFORMATION
  Report Type: 
  Country: None (occurrence: None)
  Receive Date: 20110630
  Receipt Date: 20110621
  Transmission Date: 20111010
  Serious: Yes (Hospitalization, Other)
  Sender: FDA-Public Use
  Company Number: US-ELI_LILLY_AND_COMPANY-US201104004032

PATIENT
  Sex: Female

DRUGS (11)
  1. ASPIRIN [Concomitant]
     Dosage: 325 MG, UNK
  2. REQUIP [Concomitant]
  3. CENTRUM [Concomitant]
  4. METOPROLOL TARTRATE [Concomitant]
  5. XALATAN [Concomitant]
     Indication: EYE DISORDER
  6. AMLODIPINE [Concomitant]
  7. ACETAMINOPHEN AND HYDROCODONE BITARTRATE [Concomitant]
  8. MAGNESIUM [Concomitant]
  9. CALCIUM CARBONATE [Concomitant]
  10. LUTEIN [Concomitant]
     Indication: EYE DISORDER
  11. FORTEO [Suspect]
     Indication: OSTEOPOROSIS
     Dosage: 20 UG, QD
     Dates: start: 20110407, end: 20110422

REACTIONS (6)
  - DYSARTHRIA [None]
  - HEMIPARESIS [None]
  - INJECTION SITE ERYTHEMA [None]
  - DYSPHONIA [None]
  - CEREBROVASCULAR ACCIDENT [None]
  - COUGH [None]
